FAERS Safety Report 6700438-3 (Version None)
Quarter: 2010Q2

REPORT INFORMATION
  Report Type: 
  Country: None (occurrence: None)
  Receive Date: 20100428
  Receipt Date: 20100423
  Transmission Date: 20101027
  Serious: Yes (Other)
  Sender: FDA-Public Use
  Company Number: ZA-ROCHE-699040

PATIENT
  Sex: Male
  Weight: 80 kg

DRUGS (2)
  1. RIVOTRIL [Suspect]
     Indication: DRUG USE FOR UNKNOWN INDICATION
     Route: 048
     Dates: end: 20091201
  2. PREGABALIN [Suspect]
     Indication: HEADACHE
     Dosage: INDICATION: HEADACHE AND NEUROPATHY
     Route: 048
     Dates: start: 20091101, end: 20100201

REACTIONS (2)
  - CONFUSIONAL STATE [None]
  - DISORIENTATION [None]
